FAERS Safety Report 6208890-7 (Version None)
Quarter: 2009Q2

REPORT INFORMATION
  Report Type: 
  Country: None (occurrence: None)
  Receive Date: 20090529
  Receipt Date: 20090526
  Transmission Date: 20091009
  Serious: Yes (Hospitalization)
  Sender: FDA-Public Use
  Company Number: B0575645A

PATIENT
  Sex: Female

DRUGS (3)
  1. VALACYCLOVIR HCL [Suspect]
     Indication: DRUG USE FOR UNKNOWN INDICATION
     Route: 048
     Dates: end: 20090515
  2. TARGOCID [Suspect]
     Indication: PARAMETRIC ABSCESS
     Dosage: 400MG TWICE PER DAY
     Route: 042
     Dates: start: 20090430, end: 20090510
  3. NEORAL [Suspect]
     Indication: BONE MARROW TRANSPLANT
     Route: 048
     Dates: start: 20090101

REACTIONS (2)
  - ACCIDENTAL OVERDOSE [None]
  - RENAL FAILURE [None]
